FAERS Safety Report 8078920-9 (Version None)
Quarter: 2012Q1

REPORT INFORMATION
  Report Type: 
  Country: None (occurrence: None)
  Receive Date: 20120128
  Receipt Date: 20110425
  Transmission Date: 20120608
  Serious: No
  Sender: FDA-Public Use
  Company Number: US-ABBOTT-11P-163-0721597-00

PATIENT
  Age: 30 Year
  Sex: Female

DRUGS (4)
  1. OXYCODONE HCL [Concomitant]
     Indication: PAIN
     Dosage: 10/325 ONE AS NEEDED
  2. TRAZODONE HCL [Concomitant]
     Indication: DEPRESSION
     Dosage: AT NIGHT
  3. PREDNISONE TAB [Concomitant]
     Indication: INFLAMMATION
  4. HUMIRA [Suspect]
     Indication: CROHN'S DISEASE
     Dosage: ONE TIME LOADING DOSE
     Dates: start: 20110404

REACTIONS (3)
  - PYREXIA [None]
  - INJECTION SITE PAIN [None]
  - HEADACHE [None]
